FAERS Safety Report 5308212-X (Version None)
Quarter: 2007Q2

REPORT INFORMATION
  Report Type: 
  Country: None (occurrence: None)
  Receive Date: 20070426
  Receipt Date: 20070419
  Transmission Date: 20071010
  Serious: Yes (Other)
  Sender: FDA-Public Use
  Company Number: US-AMGEN-STX163548

PATIENT
  Age: 43 Year
  Sex: Male

DRUGS (4)
  1. ENBREL [Suspect]
     Indication: PSORIASIS
     Dates: start: 20050201, end: 20051205
  2. ENBREL [Suspect]
     Indication: PSORIATIC ARTHROPATHY
  3. ANTIHYPERTENSIVE MEDICATION NOS [Concomitant]
  4. PAXIL [Concomitant]

REACTIONS (9)
  - ASTHENIA [None]
  - DECREASED APPETITE [None]
  - DIZZINESS [None]
  - HYPOAESTHESIA [None]
  - PAIN IN EXTREMITY [None]
  - PARAESTHESIA [None]
  - PSORIASIS [None]
  - VISION BLURRED [None]
  - WEIGHT DECREASED [None]
